FAERS Safety Report 25529314 (Version 2)
Quarter: 2025Q3

REPORT INFORMATION
  Report Type: Spontaneous
  Country: EU (occurrence: EU)
  Receive Date: 20250708
  Receipt Date: 20250918
  Transmission Date: 20251020
  Serious: Yes (Hospitalization, Other)
  Sender: AUROBINDO
  Company Number: EU-ROCHE-2857522

PATIENT
  Age: 10 Month
  Sex: Male
  Weight: 8.5 kg

DRUGS (11)
  1. CYCLOSPORINE [Suspect]
     Active Substance: CYCLOSPORINE
     Indication: Prophylaxis against graft versus host disease
     Route: 065
  2. CYCLOSPORINE [Suspect]
     Active Substance: CYCLOSPORINE
     Indication: Prophylaxis
  3. MYCOPHENOLATE MOFETIL [Suspect]
     Active Substance: MYCOPHENOLATE MOFETIL
     Indication: Prophylaxis against graft versus host disease
     Route: 065
  4. MYCOPHENOLATE MOFETIL [Suspect]
     Active Substance: MYCOPHENOLATE MOFETIL
     Indication: Prophylaxis
  5. RITUXIMAB [Suspect]
     Active Substance: RITUXIMAB
     Indication: Neoplasm prophylaxis
     Route: 065
  6. RITUXIMAB [Suspect]
     Active Substance: RITUXIMAB
     Indication: Prophylaxis
  7. BUSULFAN [Suspect]
     Active Substance: BUSULFAN
     Indication: Bone marrow transplant
     Dosage: 5.1 MILLIGRAM/KILOGRAM, ONCE A DAY, INJECTION (FROM -5 TO -2)
     Route: 065
  8. FLUDARABINE [Suspect]
     Active Substance: FLUDARABINE PHOSPHATE
     Indication: Bone marrow transplant
     Dosage: 40 MILLIGRAM/KILOGRAM, ONCE A DAY (FROM -5 TO -2)
     Route: 065
  9. THYMOGLOBULIN [Suspect]
     Active Substance: LAPINE T-LYMPHOCYTE IMMUNE GLOBULIN
     Indication: Bone marrow transplant
     Route: 065
  10. THYMOGLOBULIN [Suspect]
     Active Substance: LAPINE T-LYMPHOCYTE IMMUNE GLOBULIN
     Dosage: 2.5 MILLIGRAM/KILOGRAM, ONCE A DAY (4 X 2.5 MG/KG BW/DAY, FROM -5 TO -2)
     Route: 065
  11. BUSULFAN [Concomitant]
     Active Substance: BUSULFAN
     Indication: Product used for unknown indication
     Dosage: 5.1 MILLIGRAM/KILOGRAM, ONCE A DAY (4 ?5.1 MG/KG/DAY, FROM ?5 TO ?2)
     Route: 065

REACTIONS (6)
  - Bacteraemia [Unknown]
  - Post transplant lymphoproliferative disorder [Unknown]
  - Cushing^s syndrome [Unknown]
  - Acute graft versus host disease [Recovering/Resolving]
  - Off label use [Unknown]
  - Graft versus host disease in gastrointestinal tract [Recovering/Resolving]
